FAERS Safety Report 16682139 (Version 1)
Quarter: 2019Q3

REPORT INFORMATION
  Report Type: Spontaneous
  Country: KR (occurrence: KR)
  Receive Date: 20190808
  Receipt Date: 20190808
  Transmission Date: 20191004
  Serious: Yes (Other)
  Sender: FDA-Public Use
  Company Number: KR-US WORLDMEDS, LLC-USW201907-001386

PATIENT
  Age: 68 Year
  Sex: Female

DRUGS (1)
  1. BOTULINUM TOXIN TYPE B [Suspect]
     Active Substance: RIMABOTULINUMTOXINB
     Indication: PRODUCT USED FOR UNKNOWN INDICATION

REACTIONS (1)
  - Atypical mycobacterial infection [Unknown]
